FAERS Safety Report 19008421 (Version 2)
Quarter: 2021Q1

REPORT INFORMATION
  Report Type: Spontaneous
  Country: DE (occurrence: DE)
  Receive Date: 20210315
  Receipt Date: 20210323
  Transmission Date: 20210420
  Serious: Yes (Hospitalization, Other)
  Sender: FDA-Public Use
  Company Number: DE-SA-2021SA083159

PATIENT
  Age: 66 Year
  Sex: Female

DRUGS (7)
  1. ASA [Concomitant]
     Active Substance: ASPIRIN
     Dosage: 100 MG
  2. PIPERACILLIN AND TAZOBACTAM [Concomitant]
     Active Substance: PIPERACILLIN SODIUM\TAZOBACTAM SODIUM
     Indication: URINARY TRACT INFECTION
  3. SYMBICORT [Concomitant]
     Active Substance: BUDESONIDE\FORMOTEROL FUMARATE DIHYDRATE
     Dosage: 1 ? 0 ? 1
  4. DUPIXENT [Suspect]
     Active Substance: DUPILUMAB
     Dosage: 300 MG, QOW
     Route: 058
     Dates: start: 20201027
  5. PIVMELAM [Concomitant]
     Dosage: 400 MG 1 ? 1 ? 1
     Dates: start: 20200712
  6. OXYCODONE [Concomitant]
     Active Substance: OXYCODONE
     Dosage: 5 / 2.5 MG 1 ? 0 ? 1
  7. CEFTRIAXONE. [Concomitant]
     Active Substance: CEFTRIAXONE
     Indication: URINARY TRACT INFECTION

REACTIONS (6)
  - Muscular weakness [Unknown]
  - Hemianopia [Unknown]
  - Altered state of consciousness [Unknown]
  - Hypersensitivity vasculitis [Unknown]
  - Cerebral infarction [Unknown]
  - Aphasia [Recovered/Resolved]

NARRATIVE: CASE EVENT DATE: 202012
